FAERS Safety Report 10232555 (Version 1)
Quarter: 2014Q2

REPORT INFORMATION
  Report Type: Spontaneous
  Country: US (occurrence: US)
  Receive Date: 20140612
  Receipt Date: 20140612
  Transmission Date: 20141212
  Serious: No
  Sender: FDA-Public Use
  Company Number: US-TEVA-467831USA

PATIENT
  Sex: Female

DRUGS (3)
  1. ESCITALOPRAM [Suspect]
     Indication: ANXIETY
     Dosage: 20 MILLIGRAM DAILY;
     Route: 048
     Dates: start: 201311
  2. LEVOTHYROXINE [Concomitant]
  3. ZOCOR [Concomitant]

REACTIONS (1)
  - Laryngitis [Not Recovered/Not Resolved]
